FAERS Safety Report 4828861-2 (Version None)
Quarter: 2005Q4

REPORT INFORMATION
  Report Type: 
  Country: None (occurrence: None)
  Receive Date: 20051014
  Receipt Date: 20050708
  Transmission Date: 20060501
  Serious: No
  Sender: FDA-Public Use
  Company Number: 2005SP001814

PATIENT
  Age: 60 Year
  Sex: Male
  Weight: 104.3273 kg

DRUGS (3)
  1. LUNESTA [Suspect]
     Indication: SLEEP APNOEA SYNDROME
     Dosage: 3 MG;HS
     Dates: start: 20050606, end: 20050606
  2. LOVASTATIN [Concomitant]
  3. LEVOTHYROXINE SODIUM [Concomitant]

REACTIONS (6)
  - ABNORMAL DREAMS [None]
  - DYSGEUSIA [None]
  - HANGOVER [None]
  - INSOMNIA [None]
  - PAROSMIA [None]
  - SOMNOLENCE [None]
